FAERS Safety Report 9547357 (Version 1)
Quarter: 2013Q3

REPORT INFORMATION
  Report Type: Spontaneous
  Country: US (occurrence: US)
  Receive Date: 20130924
  Receipt Date: 20130924
  Transmission Date: 20140515
  Serious: Yes (Other)
  Sender: FDA-Public Use
  Company Number: US-JNJFOC-20130910062

PATIENT
  Age: 44 Year
  Sex: Male
  Weight: 72.58 kg

DRUGS (3)
  1. REMICADE [Suspect]
     Indication: INTESTINAL STENOSIS
     Route: 042
     Dates: start: 201205
  2. REMICADE [Suspect]
     Indication: COLITIS
     Route: 042
     Dates: start: 201205
  3. COLAZAL [Concomitant]
     Indication: COLITIS
     Route: 048
     Dates: start: 2000

REACTIONS (2)
  - Large intestinal stenosis [Not Recovered/Not Resolved]
  - Off label use [Unknown]
